FAERS Safety Report 12329510 (Version 1)
Quarter: 2016Q2

REPORT INFORMATION
  Report Type: Spontaneous
  Country: US (occurrence: US)
  Receive Date: 20160503
  Receipt Date: 20160503
  Transmission Date: 20160815
  Serious: Yes (Other)
  Sender: FDA-Public Use
  Company Number: US-PFIZER INC-2016232058

PATIENT
  Age: 66 Year
  Sex: Female
  Weight: 113 kg

DRUGS (1)
  1. CHANTIX [Suspect]
     Active Substance: VARENICLINE TARTRATE
     Indication: SMOKING CESSATION THERAPY
     Dosage: 1MG TABLET, 2X/DAY (MORNING AND AT NIGHT
     Route: 048
     Dates: start: 20151228

REACTIONS (3)
  - Onychomycosis [Unknown]
  - Emotional disorder [Unknown]
  - Foot fracture [Unknown]

NARRATIVE: CASE EVENT DATE: 201603
